FAERS Safety Report 10026847 (Version 1)
Quarter: 2014Q1

REPORT INFORMATION
  Report Type: Spontaneous
  Country: JP (occurrence: None)
  Receive Date: 20140318
  Receipt Date: 20140318
  Transmission Date: 20141002
  Serious: Yes (Hospitalization)
  Sender: FDA-Public Use
  Company Number: FK201400828

PATIENT
  Age: 39 Year
  Sex: Female

DRUGS (1)
  1. GEMCITABINE (GEMCITABINE) (GEMCITABINE) [Suspect]
     Indication: METASTASES TO BONE
     Dates: start: 201103

REACTIONS (8)
  - Tumour lysis syndrome [None]
  - Anaemia [None]
  - Hypercalcaemia [None]
  - Hyperuricaemia [None]
  - Hepatic function abnormal [None]
  - Renal impairment [None]
  - Neoplasm malignant [None]
  - Disease progression [None]
